FAERS Safety Report 4554556-9 (Version None)
Quarter: 2005Q1

REPORT INFORMATION
  Report Type: 
  Country: None (occurrence: None)
  Receive Date: 20050114
  Receipt Date: 20040504
  Transmission Date: 20050727
  Serious: Yes (Life-Threatening, Hospitalization)
  Sender: FDA-Public Use
  Company Number: GXKR2004US00597

PATIENT
  Age: 30 Year
  Sex: Male

DRUGS (5)
  1. LISINOPRIL [Suspect]
     Dosage: 10 MG
  2. GEMFIBROZIL (NGX) (GEMFIBROZIL) FILM-COATED TABLET [Suspect]
     Dosage: 600 MG, BID
  3. INTERMEDIATE-ACTING INSULIN (INTERMEDIATE-ACTING INSULIN) [Concomitant]
  4. REGULAR INSULIN [Concomitant]
  5. ASPIRIN [Concomitant]

REACTIONS (8)
  - ASTHENIA [None]
  - DIZZINESS [None]
  - HYPOVOLAEMIA [None]
  - NAUSEA [None]
  - RENAL FAILURE ACUTE [None]
  - RHABDOMYOLYSIS [None]
  - TREMOR [None]
  - VOMITING [None]
